FAERS Safety Report 23033416 (Version 1)
Quarter: 2023Q4

REPORT INFORMATION
  Report Type: Spontaneous
  Country: FR (occurrence: FR)
  Receive Date: 20231005
  Receipt Date: 20231005
  Transmission Date: 20240110
  Serious: Yes (Hospitalization, Other)
  Sender: FDA-Public Use
  Company Number: None

PATIENT
  Age: 45 Year
  Sex: Male
  Weight: 59 kg

DRUGS (3)
  1. CYCLOPHOSPHAMIDE [Suspect]
     Active Substance: CYCLOPHOSPHAMIDE
     Indication: Systemic lupus erythematosus
     Dosage: 700 MG/M2, 27/06 C1 07/08 C2
     Route: 042
     Dates: start: 20230627, end: 20230807
  2. BENLYSTA [Suspect]
     Active Substance: BELIMUMAB
     Indication: Systemic lupus erythematosus
     Dosage: 500 MG/M2, 30/06 C1D1 18/07 C1D14 10/08 C1D28
     Route: 042
     Dates: start: 20230630, end: 20230810
  3. PREDNISONE [Suspect]
     Active Substance: PREDNISONE
     Indication: Systemic lupus erythematosus
     Dosage: 35 MG, ONCE DAILY
     Route: 048
     Dates: start: 20230113

REACTIONS (2)
  - Serous retinal detachment [Recovering/Resolving]
  - Central serous chorioretinopathy [Recovering/Resolving]

NARRATIVE: CASE EVENT DATE: 20230820
